FAERS Safety Report 11514936 (Version 1)
Quarter: 2015Q3

REPORT INFORMATION
  Report Type: Spontaneous
  Country: US (occurrence: US)
  Receive Date: 20150916
  Receipt Date: 20150916
  Transmission Date: 20151125
  Serious: Yes (Hospitalization, Other)
  Sender: FDA-Public Use
  Company Number: US-CELGENE-USA-2015091144

PATIENT
  Age: 66 Year
  Sex: Male
  Weight: 134.84 kg

DRUGS (2)
  1. THALOMID [Suspect]
     Active Substance: THALIDOMIDE
     Route: 048
     Dates: start: 20140214, end: 20150611
  2. THALOMID [Suspect]
     Active Substance: THALIDOMIDE
     Indication: SMALL INTESTINAL HAEMORRHAGE
     Route: 048
     Dates: start: 201303

REACTIONS (3)
  - Small intestinal haemorrhage [Unknown]
  - Renal failure [Recovered/Resolved]
  - Cardiac disorder [Recovered/Resolved]

NARRATIVE: CASE EVENT DATE: 20150611
